FAERS Safety Report 11205468 (Version 2)
Quarter: 2015Q3

REPORT INFORMATION
  Report Type: Report from Study
  Country: US (occurrence: US)
  Receive Date: 20150622
  Receipt Date: 20150727
  Transmission Date: 20151125
  Serious: Yes (Other)
  Sender: FDA-Public Use
  Company Number: US-BIOGENIDEC-2006BI004606

PATIENT
  Age: 58 Year
  Sex: Female
  Weight: 52 kg

DRUGS (10)
  1. BACLOFEN. [Concomitant]
     Active Substance: BACLOFEN
  2. AVONEX [Suspect]
     Active Substance: INTERFERON BETA-1A
     Indication: RELAPSING-REMITTING MULTIPLE SCLEROSIS
     Route: 030
  3. CLONAZEPAM. [Concomitant]
     Active Substance: CLONAZEPAM
  4. MELATONIN [Concomitant]
     Active Substance: MELATONIN
  5. CEREFOLIN [Concomitant]
     Active Substance: CYANOCOBALAMIN CO-57\LEVOMEFOLATE CALCIUM\PYRIDOXINE HYDROCHLORIDE\RIBOFLAVIN
     Indication: COGNITIVE DISORDER
  6. ZOLPIDEM [Concomitant]
     Active Substance: ZOLPIDEM\ZOLPIDEM TARTRATE
  7. VITAMIN D [Concomitant]
     Active Substance: CHOLECALCIFEROL
  8. AVONEX [Suspect]
     Active Substance: INTERFERON BETA-1A
     Indication: RELAPSING-REMITTING MULTIPLE SCLEROSIS
     Dates: start: 20030618, end: 200606
  9. MAGNESIUM [Concomitant]
     Active Substance: MAGNESIUM
     Indication: CONSTIPATION
  10. UNKNOWDRUG [Concomitant]
     Active Substance: UNSPECIFIED INGREDIENT

REACTIONS (1)
  - Breast cancer [Recovered/Resolved]

NARRATIVE: CASE EVENT DATE: 200604
